FAERS Safety Report 14079796 (Version 1)
Quarter: 2017Q4

REPORT INFORMATION
  Report Type: Spontaneous
  Country: US (occurrence: US)
  Receive Date: 20171012
  Receipt Date: 20171012
  Transmission Date: 20180321
  Serious: No
  Sender: FDA-Public Use
  Company Number: US-PFIZER INC-2017436725

PATIENT
  Age: 47 Year
  Sex: Female

DRUGS (2)
  1. ADVIL MENSTRUAL PAIN [Suspect]
     Active Substance: IBUPROFEN SODIUM
     Indication: DYSMENORRHOEA
     Dosage: 1 DF, UNK [I TRIED ONE ADVIL]
  2. ADVIL MENSTRUAL PAIN [Suspect]
     Active Substance: IBUPROFEN SODIUM
     Dosage: 2 DF, UNK [TRIED TAKING 2 PILLS]

REACTIONS (1)
  - Drug ineffective [Unknown]
